FAERS Safety Report 9254960 (Version 1)
Quarter: 2013Q2

REPORT INFORMATION
  Report Type: Spontaneous
  Country: SE (occurrence: SE)
  Receive Date: 20130425
  Receipt Date: 20130425
  Transmission Date: 20140414
  Serious: Yes (Death, Life-Threatening, Other)
  Sender: FDA-Public Use
  Company Number: SE-ROXANE LABORATORIES, INC.-2013-RO-00542RO

PATIENT
  Age: 20 Year
  Sex: Female

DRUGS (2)
  1. BUPRENORPHINE HYDROCHLORIDE [Suspect]
  2. AMPHETAMINE [Suspect]

REACTIONS (3)
  - Accidental overdose [Fatal]
  - Toxicity to various agents [Unknown]
  - Pulmonary oedema [Unknown]
